FAERS Safety Report 8590081-6 (Version None)
Quarter: 2012Q3

REPORT INFORMATION
  Report Type: 
  Country: None (occurrence: None)
  Receive Date: 20120813
  Receipt Date: 20120730
  Transmission Date: 20120928
  Serious: Yes (Other)
  Sender: FDA-Public Use
  Company Number: US-JNJFOC-2010016018

PATIENT
  Sex: Female
  Weight: 65.76 kg

DRUGS (8)
  1. ASPIRIN [Concomitant]
     Indication: PRODUCT USED FOR UNKNOWN INDICATION
     Dosage: DAILY DOSE TEXT: UNKNOWN
     Route: 065
  2. ZETIA [Concomitant]
     Indication: PRODUCT USED FOR UNKNOWN INDICATION
     Dosage: DAILY DOSE TEXT: UNKNOWN
     Route: 065
  3. RANITIDINE [Concomitant]
     Indication: PRODUCT USED FOR UNKNOWN INDICATION
     Dosage: DAILY DOSE TEXT: UNKNOWN
     Route: 065
  4. PLAVIX [Concomitant]
     Dosage: DAILY DOSE TEXT: UNKNOWN
     Route: 065
  5. LYRICA [Concomitant]
     Dosage: DAILY DOSE TEXT: UNKNOWN
     Route: 065
  6. NICOTROL [Suspect]
     Indication: SMOKING CESSATION THERAPY
     Dosage: DAILY DOSE TEXT: 2 PUFFS AS NEEDED
     Route: 065
     Dates: start: 20100608, end: 20100611
  7. LYRICA [Concomitant]
     Indication: PRODUCT USED FOR UNKNOWN INDICATION
     Route: 065
  8. FUROSEMIDE [Concomitant]
     Indication: PRODUCT USED FOR UNKNOWN INDICATION
     Dosage: DAILY DOSE TEXT: UNKNOWN
     Route: 065

REACTIONS (4)
  - DYSPHONIA [None]
  - ORAL MUCOSAL BLISTERING [None]
  - NAUSEA [None]
  - FEELING ABNORMAL [None]
